FAERS Safety Report 6676726-6 (Version None)
Quarter: 2010Q2

REPORT INFORMATION
  Report Type: 
  Country: None (occurrence: None)
  Receive Date: 20100412
  Receipt Date: 20100405
  Transmission Date: 20101027
  Serious: Yes (Life-Threatening, Hospitalization)
  Sender: FDA-Public Use
  Company Number: US-ROCHE-687294

PATIENT
  Sex: Female
  Weight: 64 kg

DRUGS (13)
  1. BEVACIZUMAB [Suspect]
     Indication: NON-SMALL CELL LUNG CANCER
     Route: 042
     Dates: start: 20091217, end: 20100128
  2. PACLITAXEL [Suspect]
     Indication: NON-SMALL CELL LUNG CANCER
     Route: 042
     Dates: start: 20091217, end: 20100128
  3. CARBOPLATIN [Suspect]
     Indication: NON-SMALL CELL LUNG CANCER
     Route: 042
     Dates: start: 20091217, end: 20100128
  4. PRILOSEC [Concomitant]
     Dates: start: 20091204
  5. DEXAMETHASONE [Concomitant]
     Dates: start: 20091216
  6. LISINOPRIL [Concomitant]
     Dates: start: 20091102
  7. REGLAN [Concomitant]
     Dates: start: 20091204
  8. CENTRUM [Concomitant]
     Dates: start: 20091208
  9. OXYCONTIN [Concomitant]
     Dates: start: 20091217
  10. FOSAMAX [Concomitant]
     Dates: start: 20091102, end: 20091211
  11. FOLIC ACID [Concomitant]
     Dates: start: 20091210, end: 20091217
  12. FORTICAL [Concomitant]
     Dates: start: 20091202, end: 20091211
  13. VICODIN [Concomitant]

REACTIONS (3)
  - CEREBROVASCULAR ACCIDENT [None]
  - ENCEPHALOPATHY [None]
  - MENINGITIS HERPES [None]
